FAERS Safety Report 23325903 (Version 1)
Quarter: 2023Q4

REPORT INFORMATION
  Report Type: Spontaneous
  Country: IT (occurrence: IT)
  Receive Date: 20231221
  Receipt Date: 20231221
  Transmission Date: 20240110
  Serious: Yes (Hospitalization, Other)
  Sender: FDA-Public Use
  Company Number: IT-002147023-NVSC2023IT257883

PATIENT
  Age: 40 Year
  Sex: Female

DRUGS (6)
  1. KESIMPTA [Suspect]
     Active Substance: OFATUMUMAB
     Indication: Multiple sclerosis
     Dosage: UNK
     Route: 058
     Dates: start: 20230720
  2. KESIMPTA [Suspect]
     Active Substance: OFATUMUMAB
     Dosage: UNK
     Route: 058
     Dates: start: 20230727
  3. KESIMPTA [Suspect]
     Active Substance: OFATUMUMAB
     Dosage: UNK
     Route: 058
     Dates: start: 20230803
  4. BRIVARACETAM [Suspect]
     Active Substance: BRIVARACETAM
     Indication: Epilepsy
     Dosage: 100 MG, QD (100 MG DUE VOLTE/DIE )
     Route: 065
  5. TOPAMAX [Suspect]
     Active Substance: TOPIRAMATE
     Indication: Epilepsy
     Dosage: 200 MG, BID (DOSAGGIO 200 MG DUE VOLTE AL GIORNO  )
     Route: 048
  6. PHENOBARBITAL [Suspect]
     Active Substance: PHENOBARBITAL
     Indication: Epilepsy
     Dosage: 100 MG, QD
     Route: 065

REACTIONS (3)
  - Neutropenic sepsis [Unknown]
  - Gingivitis ulcerative [Recovered/Resolved]
  - Febrile neutropenia [Recovered/Resolved]

NARRATIVE: CASE EVENT DATE: 20230829
